FAERS Safety Report 25719684 (Version 1)
Quarter: 2025Q3

REPORT INFORMATION
  Report Type: Spontaneous
  Country: US (occurrence: US)
  Receive Date: 20250825
  Receipt Date: 20250825
  Transmission Date: 20251020
  Serious: No
  Sender: ELI LILLY AND COMPANY
  Company Number: US-ELI_LILLY_AND_COMPANY-US202508015387

PATIENT
  Age: 53 Year
  Sex: Female

DRUGS (1)
  1. ZEPBOUND [Suspect]
     Active Substance: TIRZEPATIDE
     Indication: Weight control
     Route: 065
     Dates: start: 20250812

REACTIONS (10)
  - Insomnia [Recovering/Resolving]
  - Influenza like illness [Recovering/Resolving]
  - Tension headache [Recovering/Resolving]
  - Palpitations [Recovered/Resolved]
  - Cardiac murmur [Recovering/Resolving]
  - Feeling abnormal [Recovering/Resolving]
  - Chest pain [Recovering/Resolving]
  - Heart rate increased [Recovering/Resolving]
  - Asthenia [Recovering/Resolving]
  - Nausea [Recovering/Resolving]

NARRATIVE: CASE EVENT DATE: 20250812
